FAERS Safety Report 20532786 (Version 2)
Quarter: 2022Q3

REPORT INFORMATION
  Report Type: Spontaneous
  Country: DE (occurrence: DE)
  Receive Date: 20220301
  Receipt Date: 20220629
  Transmission Date: 20221027
  Serious: Yes (Other)
  Sender: FDA-Public Use
  Company Number: DE-NOVARTISPH-NVSC2022DE042637

PATIENT
  Age: 42 Year
  Sex: Female

DRUGS (4)
  1. TOPIRAMATE [Suspect]
     Active Substance: TOPIRAMATE
     Indication: Epilepsy
     Dosage: 400 MG, QD (PLASMA LEVEL: 14.0 UG/ML, THERAPEUTIC REFERENCE RANGE: 2-20 ?G/ML)
     Route: 065
  2. TOPIRAMATE [Suspect]
     Active Substance: TOPIRAMATE
     Indication: Migraine
  3. LEVETIRACETAM [Suspect]
     Active Substance: LEVETIRACETAM
     Indication: Epilepsy
     Dosage: 4000 MG, QD (75.0 UG/ML, THERAPEUTIC REFERENCE RANGE: 10-40 ?G/ML)
     Route: 065
  4. LACOSAMIDE [Suspect]
     Active Substance: LACOSAMIDE
     Indication: Epilepsy
     Dosage: 250 MG, QD (4.8 UG/ML, THERAPEUTIC REFERENCE RANGE: 1-10 UG/ML)
     Route: 065

REACTIONS (2)
  - Cognitive disorder [Recovering/Resolving]
  - Drug ineffective [Unknown]
